FAERS Safety Report 9505796 (Version 1)
Quarter: 2013Q1

REPORT INFORMATION
  Report Type: Spontaneous
  Country: US (occurrence: None)
  Receive Date: 20130219
  Receipt Date: 20130219
  Transmission Date: 20140127
  Serious: Yes (Hospitalization)
  Sender: FDA-Public Use
  Company Number: 1207USA011166

PATIENT
  Age: 52 Year
  Sex: Male

DRUGS (1)
  1. SIMVASTATIN [Suspect]
     Dosage: 40 MG, QPM , ORAL
     Route: 048

REACTIONS (3)
  - Rhabdomyolysis [None]
  - Liver function test abnormal [None]
  - Muscle spasms [None]
